FAERS Safety Report 14223851 (Version 2)
Quarter: 2017Q4

REPORT INFORMATION
  Report Type: Report from Study
  Country: US (occurrence: US)
  Receive Date: 20171125
  Receipt Date: 20171216
  Transmission Date: 20180321
  Serious: Yes (Other)
  Sender: FDA-Public Use
  Company Number: PHEH2017US037797

PATIENT
  Sex: Female
  Weight: 93.44 kg

DRUGS (4)
  1. COSENTYX [Suspect]
     Active Substance: SECUKINUMAB
     Indication: PSORIATIC ARTHROPATHY
  2. MOBIC [Suspect]
     Active Substance: MELOXICAM
     Indication: PSORIATIC ARTHROPATHY
  3. COSENTYX [Suspect]
     Active Substance: SECUKINUMAB
     Indication: JUVENILE PSORIATIC ARTHRITIS
     Dosage: 150 MG, QMO (Q4 WEEKS)
     Route: 058
     Dates: start: 201706
  4. MOBIC [Suspect]
     Active Substance: MELOXICAM
     Indication: JUVENILE PSORIATIC ARTHRITIS
     Route: 065

REACTIONS (6)
  - Oral mucosal eruption [Unknown]
  - Dysphagia [Unknown]
  - Cheilitis [Unknown]
  - Oral pain [Unknown]
  - Inappropriate schedule of drug administration [Unknown]
  - Lip pain [Unknown]
